FAERS Safety Report 6715860 (Version 3)
Quarter: 2020Q3

REPORT INFORMATION
  Report Type: Report from Study
  Country: HU (occurrence: HU)
  Receive Date: 20080801
  Receipt Date: 20081010
  Transmission Date: 20201104
  Serious: Yes (Hospitalization)
  Sender: FDA-Public Use
  Company Number: HU-WYE-H05197908

PATIENT
  Age: 64 Year
  Sex: Female
  Weight: 61 kg

DRUGS (5)
  1. BEVACIZUMAB. [Suspect]
     Active Substance: BEVACIZUMAB
     Indication: RENAL CELL CARCINOMA
     Route: 042
     Dates: start: 20080711, end: 20080725
  2. ONDANSETRON [Concomitant]
     Active Substance: ONDANSETRON
     Indication: NAUSEA
     Dosage: 1 X 8MG AT UNKNOWN FREQUENCY
     Route: 048
     Dates: start: 20080607
  3. BISOPROLOL [Concomitant]
     Active Substance: BISOPROLOL
     Indication: EXTRASYSTOLES
     Dosage: 2 X 2.5MG AT UNKNOWN FREQUENCY
     Route: 048
     Dates: start: 20080708
  4. TEMSIROLIMUS. [Suspect]
     Active Substance: TEMSIROLIMUS
     Indication: RENAL CELL CARCINOMA
     Route: 042
     Dates: start: 20080711, end: 20080725
  5. CALCIUM [Concomitant]
     Active Substance: CALCIUM
     Indication: PROPHYLAXIS
     Dosage: 1 X 500MG AT UNKNOWN FREQUENCY
     Route: 048
     Dates: end: 20080924

REACTIONS (4)
  - Nausea [Recovered/Resolved]
  - Diarrhoea [Recovered/Resolved]
  - Mouth ulceration [Recovered/Resolved]
  - Vomiting [Recovered/Resolved]

NARRATIVE: CASE EVENT DATE: 20080719
